FAERS Safety Report 21237972 (Version 2)
Quarter: 2022Q3

REPORT INFORMATION
  Report Type: Spontaneous
  Country: BR (occurrence: BR)
  Receive Date: 20220822
  Receipt Date: 20220914
  Transmission Date: 20221027
  Serious: Yes (Hospitalization, Other)
  Sender: FDA-Public Use
  Company Number: BR-BRACCO-2022BR03228

PATIENT
  Age: 16 Year
  Sex: Female

DRUGS (1)
  1. IOPAMIRON [Suspect]
     Active Substance: IOPAMIDOL
     Indication: Computerised tomogram
     Dosage: 60 ML, SINGLE
     Route: 042
     Dates: start: 20220811, end: 20220811

REACTIONS (5)
  - Aphasia [Recovered/Resolved]
  - Asthenia [Recovered/Resolved]
  - Hypothermia [Recovered/Resolved]
  - Paresis [Recovered/Resolved]
  - Gaze palsy [Recovered/Resolved]

NARRATIVE: CASE EVENT DATE: 20220811
